FAERS Safety Report 13033944 (Version 2)
Quarter: 2017Q1

REPORT INFORMATION
  Report Type: Spontaneous
  Country: US (occurrence: US)
  Receive Date: 20161216
  Receipt Date: 20170203
  Transmission Date: 20170428
  Serious: Yes (Other)
  Sender: FDA-Public Use
  Company Number: US-009507513-1612USA004248

PATIENT
  Age: 65 Year
  Sex: Male

DRUGS (1)
  1. PRINIVIL [Suspect]
     Active Substance: LISINOPRIL
     Dosage: UNK
     Route: 048
     Dates: end: 20150903

REACTIONS (9)
  - Dyspnoea exertional [Recovering/Resolving]
  - Diarrhoea [Unknown]
  - Mucosal inflammation [Unknown]
  - Acute lymphocytic leukaemia [Unknown]
  - Visual impairment [Unknown]
  - Deep vein thrombosis [Unknown]
  - Drug interaction [Unknown]
  - Renal injury [Unknown]
  - Peripheral swelling [Recovering/Resolving]

NARRATIVE: CASE EVENT DATE: 2015
